FAERS Safety Report 9580817 (Version 2)
Quarter: 2013Q4

REPORT INFORMATION
  Report Type: Spontaneous
  Country: CO (occurrence: CO)
  Receive Date: 20131002
  Receipt Date: 20131004
  Transmission Date: 20140711
  Serious: Yes (Other)
  Sender: FDA-Public Use
  Company Number: CO-PFIZER INC-2013279685

PATIENT
  Age: 6 Year
  Sex: Female

DRUGS (1)
  1. GENOTROPIN [Suspect]
     Indication: GROWTH HORMONE DEFICIENCY
     Dosage: 0.6 MG, 1X/DAY
     Route: 058
     Dates: start: 2011

REACTIONS (3)
  - Incorrect product storage [Recovered/Resolved]
  - Convulsion [Recovered/Resolved]
  - Headache [Not Recovered/Not Resolved]
